FAERS Safety Report 9097938 (Version 2)
Quarter: 2013Q1

REPORT INFORMATION
  Report Type: Spontaneous
  Country: JP (occurrence: JP)
  Receive Date: 20130212
  Receipt Date: 20130219
  Transmission Date: 20140127
  Serious: Yes (Other)
  Sender: FDA-Public Use
  Company Number: JP-ROCHE-1188309

PATIENT
  Age: 87 Year
  Sex: Female

DRUGS (4)
  1. ALTEPLASE [Suspect]
     Indication: ISCHAEMIC STROKE
     Route: 042
  2. CILOSTAZOL [Suspect]
     Indication: ANTICOAGULANT THERAPY
     Route: 045
  3. ASPIRIN [Concomitant]
     Route: 065
  4. CLOPIDOGREL [Concomitant]
     Route: 065

REACTIONS (2)
  - Tachycardia [Unknown]
  - Drug ineffective [Recovered/Resolved]
